FAERS Safety Report 9154028 (Version 5)
Quarter: 2013Q4

REPORT INFORMATION
  Report Type: Spontaneous
  Country: US (occurrence: US)
  Receive Date: 20130311
  Receipt Date: 20131003
  Transmission Date: 20140711
  Serious: Yes (Hospitalization, Disabling, Other)
  Sender: FDA-Public Use
  Company Number: US-009507513-1303USA003913

PATIENT
  Sex: Female
  Weight: 77.98 kg

DRUGS (5)
  1. FOSAMAX [Suspect]
     Indication: OSTEOPOROSIS PROPHYLAXIS
     Dosage: 70 MG, UNK
     Route: 048
     Dates: start: 20050223
  2. FOSAMAX [Suspect]
     Indication: OSTEOPENIA
  3. ALENDRONATE SODIUM [Suspect]
     Indication: OSTEOPOROSIS
     Dosage: 70 MG, UNK
     Route: 048
     Dates: start: 20090318, end: 20091128
  4. CALCIUM D3 [Concomitant]
     Dosage: 600 MG, UNK
     Dates: start: 1990
  5. SIMVASTATIN [Concomitant]
     Indication: HYPERLIPIDAEMIA
     Dosage: UNK
     Dates: start: 1990

REACTIONS (25)
  - Intramedullary rod insertion [Unknown]
  - Femur fracture [Unknown]
  - Osteonecrosis [Unknown]
  - Intervertebral disc protrusion [Not Recovered/Not Resolved]
  - Osteonecrosis [Unknown]
  - Femur fracture [Recovered/Resolved]
  - Tonsillectomy [Unknown]
  - Biopsy breast [Unknown]
  - Adverse event [Unknown]
  - Low turnover osteopathy [Unknown]
  - Insomnia [Unknown]
  - Rotator cuff syndrome [Unknown]
  - Bursitis [Unknown]
  - Meniscus injury [Unknown]
  - Medical device discomfort [Unknown]
  - Medical device removal [Unknown]
  - Thrombosis [Unknown]
  - Neurorrhaphy [Unknown]
  - Osteoarthritis [Not Recovered/Not Resolved]
  - Impaired healing [Unknown]
  - Temporomandibular joint syndrome [Unknown]
  - Sinus disorder [Unknown]
  - Vision blurred [Unknown]
  - Pain in jaw [Unknown]
  - Back pain [Not Recovered/Not Resolved]
